FAERS Safety Report 20646389 (Version 1)
Quarter: 2022Q1

REPORT INFORMATION
  Report Type: Spontaneous
  Country: RS (occurrence: RS)
  Receive Date: 20220329
  Receipt Date: 20220329
  Transmission Date: 20220423
  Serious: Yes (Hospitalization, Disabling)
  Sender: FDA-Public Use
  Company Number: RS-BAYER-2022A044136

PATIENT
  Age: 72 Year
  Sex: Male

DRUGS (1)
  1. XARELTO [Suspect]
     Active Substance: RIVAROXABAN
     Indication: Atrial flutter
     Dosage: 20 MG
     Route: 048
     Dates: start: 202103

REACTIONS (3)
  - Haemorrhage intracranial [Recovered/Resolved with Sequelae]
  - Hemiplegia [Unknown]
  - Aphasia [Unknown]
